FAERS Safety Report 24692525 (Version 2)
Quarter: 2024Q4

REPORT INFORMATION
  Report Type: Spontaneous
  Country: IT (occurrence: IT)
  Receive Date: 20241203
  Receipt Date: 20241205
  Transmission Date: 20250115
  Serious: Yes (Hospitalization)
  Sender: PFIZER
  Company Number: None

PATIENT
  Age: 54 Year
  Sex: Female
  Weight: 69 kg

DRUGS (16)
  1. ADCETRIS [Suspect]
     Active Substance: BRENTUXIMAB VEDOTIN
     Indication: Hodgkin^s disease
     Dosage: 72.43 MG (1.2 MG/KG ON DAYS 1 AND 15 OF EACH MONTH FOR 6 MONTHS)
     Route: 042
     Dates: start: 20240911
  2. ADCETRIS [Suspect]
     Active Substance: BRENTUXIMAB VEDOTIN
     Dosage: 60 MILLIGRAM
     Route: 042
  3. ADCETRIS [Suspect]
     Active Substance: BRENTUXIMAB VEDOTIN
     Dosage: 50 MILLIGRAM
     Route: 042
     Dates: start: 20241009
  4. ADCETRIS [Suspect]
     Active Substance: BRENTUXIMAB VEDOTIN
     Dosage: 47 MILLIGRAM
     Route: 042
  5. DOXORUBICIN HYDROCHLORIDE [Suspect]
     Active Substance: DOXORUBICIN HYDROCHLORIDE
     Indication: Hodgkin^s disease
     Dosage: 41.75 MG
     Route: 042
     Dates: start: 20240911
  6. DOXORUBICIN HYDROCHLORIDE [Suspect]
     Active Substance: DOXORUBICIN HYDROCHLORIDE
     Dosage: 34 MG
     Route: 042
     Dates: start: 20240925
  7. DOXORUBICIN HYDROCHLORIDE [Suspect]
     Active Substance: DOXORUBICIN HYDROCHLORIDE
     Dosage: 34 MG
     Route: 042
     Dates: start: 20241009
  8. DOXORUBICIN HYDROCHLORIDE [Suspect]
     Active Substance: DOXORUBICIN HYDROCHLORIDE
     Dosage: 30 MG, VELBE:1 CYCLE
     Route: 042
     Dates: start: 20241023
  9. VINBLASTINE SULFATE [Suspect]
     Active Substance: VINBLASTINE SULFATE
     Indication: Hodgkin^s disease
     Dosage: 10.02 MG
     Route: 042
     Dates: start: 20240911
  10. VINBLASTINE SULFATE [Suspect]
     Active Substance: VINBLASTINE SULFATE
     Dosage: 8 MG
     Route: 042
     Dates: start: 20240925
  11. VINBLASTINE SULFATE [Suspect]
     Active Substance: VINBLASTINE SULFATE
     Dosage: 8 MG
     Route: 042
     Dates: start: 20241009
  12. VINBLASTINE SULFATE [Suspect]
     Active Substance: VINBLASTINE SULFATE
     Dosage: 7 MG
     Route: 042
     Dates: start: 20241023
  13. DACARBAZINE [Suspect]
     Active Substance: DACARBAZINE
     Indication: Hodgkin^s disease
     Dosage: 626.25 MG
     Route: 042
     Dates: start: 20240911
  14. DACARBAZINE [Suspect]
     Active Substance: DACARBAZINE
     Dosage: 500 MG
     Route: 042
     Dates: start: 20240925
  15. DACARBAZINE [Suspect]
     Active Substance: DACARBAZINE
     Dosage: 500 MG
     Route: 042
     Dates: start: 20241009
  16. DACARBAZINE [Suspect]
     Active Substance: DACARBAZINE
     Dosage: 470 MG
     Route: 042
     Dates: start: 20241023

REACTIONS (6)
  - Guillain-Barre syndrome [Recovering/Resolving]
  - Polyneuropathy [Recovering/Resolving]
  - Cranial nerve disorder [Recovering/Resolving]
  - Asthenia [Unknown]
  - Abdominal pain [Unknown]
  - Transaminases increased [Unknown]

NARRATIVE: CASE EVENT DATE: 20240901
